FAERS Safety Report 5627656-X (Version None)
Quarter: 2008Q1

REPORT INFORMATION
  Report Type: 
  Country: None (occurrence: None)
  Receive Date: 20080214
  Receipt Date: 20080214
  Transmission Date: 20080703
  Serious: Yes (Hospitalization)
  Sender: FDA-Public Use
  Company Number: None

PATIENT
  Sex: Female
  Weight: 40.3701 kg

DRUGS (8)
  1. ALIMTA [Suspect]
     Indication: SQUAMOUS CELL CARCINOMA
     Dosage: Q 3 WEEKS IV
     Route: 042
     Dates: start: 20080118
  2. MS CONTIN [Concomitant]
  3. OXYCODONE HCL [Concomitant]
  4. ASPIRIN [Concomitant]
  5. ALBUTEROL [Concomitant]
  6. NEURONTIN [Concomitant]
  7. AMBIEN PRN [Concomitant]
  8. CIPRADEX OTIC [Concomitant]

REACTIONS (2)
  - PNEUMONIA BACTERIAL [None]
  - SEPSIS [None]
